FAERS Safety Report 8851013 (Version 3)
Quarter: 2014Q2

REPORT INFORMATION
  Report Type: Spontaneous
  Country: US (occurrence: US)
  Receive Date: 20121019
  Receipt Date: 20131024
  Transmission Date: 20141212
  Serious: No
  Sender: FDA-Public Use
  Company Number: US-PFIZER INC-2012260560

PATIENT
  Sex: Female

DRUGS (5)
  1. DILANTIN [Suspect]
     Indication: EPILEPSY
     Dosage: 300 MG, 1X/DAY
  2. TEGRETOL [Concomitant]
     Indication: CONVULSION
  3. PHENOBARBITAL [Concomitant]
     Indication: CONVULSION
  4. DIOVAN [Concomitant]
     Indication: BLOOD PRESSURE
  5. VENLAFAXINE HYDROCHLORIDE ER [Concomitant]
     Indication: DEPRESSION
     Dosage: 75 MG

REACTIONS (3)
  - Tooth loss [Unknown]
  - Tooth disorder [Unknown]
  - Overweight [Unknown]
